FAERS Safety Report 10346237 (Version 3)
Quarter: 2021Q4

REPORT INFORMATION
  Report Type: Spontaneous
  Country: GB (occurrence: GB)
  Receive Date: 20140728
  Receipt Date: 20211220
  Transmission Date: 20220303
  Serious: Yes (Congenital Anomaly, Other)
  Sender: FDA-Public Use
  Company Number: GB-ABBVIE-14P-167-1265498-00

PATIENT
  Sex: Male

DRUGS (1)
  1. EPILIM [Suspect]
     Active Substance: VALPROATE SODIUM
     Indication: Maternal exposure timing unspecified
     Route: 064

REACTIONS (23)
  - Foetal anticonvulsant syndrome [Unknown]
  - Tonsillectomy [Unknown]
  - Strabismus [Unknown]
  - Dyspraxia [Unknown]
  - Mobility decreased [Unknown]
  - Speech disorder [Unknown]
  - Hypoacusis [Unknown]
  - Foot deformity [Unknown]
  - Motor dysfunction [Unknown]
  - Balance disorder [Unknown]
  - Learning disorder [Unknown]
  - General physical condition abnormal [Unknown]
  - Gait disturbance [Unknown]
  - Hip deformity [Unknown]
  - Foetal exposure during pregnancy [Unknown]
  - Pain [Unknown]
  - Memory impairment [Unknown]
  - Nervous system disorder [Unknown]
  - Disability [Unknown]
  - Disturbance in attention [Unknown]
  - Ear disorder [Unknown]
  - Social problem [Unknown]
  - General physical condition abnormal [Unknown]
